FAERS Safety Report 7781183-2 (Version None)
Quarter: 2011Q3

REPORT INFORMATION
  Report Type: 
  Country: None (occurrence: None)
  Receive Date: 20110927
  Receipt Date: 20110912
  Transmission Date: 20111222
  Serious: Yes (Other)
  Sender: FDA-Public Use
  Company Number: TN-WATSON-2011-09831

PATIENT

DRUGS (1)
  1. ISONIAZID [Suspect]
     Indication: TUBERCULOSIS
     Dosage: UNK

REACTIONS (7)
  - MEMORY IMPAIRMENT [None]
  - PSYCHIATRIC SYMPTOM [None]
  - POLYNEUROPATHY [None]
  - NERVOUSNESS [None]
  - AGGRESSION [None]
  - GRAND MAL CONVULSION [None]
  - INSOMNIA [None]
